FAERS Safety Report 12324793 (Version 1)
Quarter: 2016Q2

REPORT INFORMATION
  Report Type: Spontaneous
  Country: CN (occurrence: CN)
  Receive Date: 20160502
  Receipt Date: 20160502
  Transmission Date: 20160815
  Serious: Yes (Life-Threatening, Other)
  Sender: FDA-Public Use
  Company Number: CN-OTSUKA-2016_009660

PATIENT

DRUGS (2)
  1. DACOGEN [Suspect]
     Active Substance: DECITABINE
     Indication: MYELODYSPLASTIC SYNDROME
     Dosage: 20 MG/M2, IN 1 DAY 1 HOUR +/- 15 MINUTES FOR 5 CONSECUTIVE DAYS.
     Route: 042
  2. DACOGEN [Suspect]
     Active Substance: DECITABINE
     Indication: ACUTE MYELOID LEUKAEMIA

REACTIONS (12)
  - Device related infection [Unknown]
  - Anal infection [Unknown]
  - Pyrexia [Unknown]
  - Fatigue [Unknown]
  - Neutrophil count decreased [Unknown]
  - Decreased appetite [Unknown]
  - Pneumonia [Unknown]
  - Haematotoxicity [Unknown]
  - Liver injury [Unknown]
  - Platelet count decreased [Unknown]
  - Sepsis [Unknown]
  - Nausea [Unknown]
